FAERS Safety Report 8007203-8 (Version None)
Quarter: 2011Q4

REPORT INFORMATION
  Report Type: 
  Country: None (occurrence: None)
  Receive Date: 20111227
  Receipt Date: 20111215
  Transmission Date: 20120403
  Serious: Yes (Hospitalization)
  Sender: FDA-Public Use
  Company Number: US-UCBSA-028218

PATIENT
  Age: 51 Year
  Sex: Female
  Weight: 141.52 kg

DRUGS (5)
  1. BUDESONIDE [Concomitant]
     Indication: CROHN'S DISEASE
     Dates: start: 20100727
  2. ATENOLOL [Concomitant]
  3. PREDNISONE TAB [Concomitant]
     Indication: CROHN'S DISEASE
     Dates: start: 20100823
  4. ACETAMINOPHEN [Concomitant]
     Indication: CROHN'S DISEASE
  5. CIMZIA [Suspect]
     Indication: CROHN'S DISEASE
     Route: 058
     Dates: start: 20101204

REACTIONS (2)
  - ABDOMINAL WALL ABSCESS [None]
  - FISTULA [None]
